FAERS Safety Report 5322180-6 (Version None)
Quarter: 2007Q2

REPORT INFORMATION
  Report Type: 
  Country: None (occurrence: None)
  Receive Date: 20070511
  Receipt Date: 20070430
  Transmission Date: 20071010
  Serious: Yes (Other)
  Sender: FDA-Public Use
  Company Number: HQWYE915901MAY07

PATIENT
  Sex: Male

DRUGS (6)
  1. PROTONIX [Suspect]
     Indication: HIATUS HERNIA
     Route: 048
     Dates: start: 20070301, end: 20070401
  2. XANAX [Concomitant]
     Dosage: UNKNOWN
     Route: 065
  3. MAXZIDE [Concomitant]
     Dosage: UNKNOWN
     Route: 065
  4. CYMBALTA [Concomitant]
     Dosage: UNKNOWN
     Route: 065
  5. BENICAR [Concomitant]
     Dosage: UNKNOWN
     Route: 065
  6. LOTREL [Concomitant]
     Dosage: UNKNOWN
     Route: 065

REACTIONS (3)
  - FEELING JITTERY [None]
  - NERVOUSNESS [None]
  - SUICIDAL IDEATION [None]
